FAERS Safety Report 21341425 (Version 4)
Quarter: 2022Q4

REPORT INFORMATION
  Report Type: Spontaneous
  Country: US (occurrence: US)
  Receive Date: 20220916
  Receipt Date: 20221206
  Transmission Date: 20230112
  Serious: Yes (Other)
  Sender: FDA-Public Use
  Company Number: US-UCBSA-2022052383

PATIENT
  Age: 33 Year
  Sex: Male

DRUGS (4)
  1. FINTEPLA [Suspect]
     Active Substance: FENFLURAMINE
     Indication: Product used for unknown indication
     Dosage: 4.3 ML IN MORNING AND 5 ML AT NIGHT
  2. FINTEPLA [Suspect]
     Active Substance: FENFLURAMINE
     Dosage: 4 ML QAM AND 5.5 ML QPM
  3. FINTEPLA [Suspect]
     Active Substance: FENFLURAMINE
     Dosage: 4 ML QAM AND 5.5 ML QPM
  4. TOPAMAX [Concomitant]
     Active Substance: TOPIRAMATE
     Indication: Product used for unknown indication

REACTIONS (8)
  - Seizure cluster [Recovered/Resolved]
  - Generalised tonic-clonic seizure [Recovered/Resolved]
  - Seizure [Not Recovered/Not Resolved]
  - Myoclonus [Recovered/Resolved]
  - Weight increased [Unknown]
  - Insomnia [Not Recovered/Not Resolved]
  - Therapeutic response unexpected [Not Recovered/Not Resolved]
  - Product prescribing error [Unknown]

NARRATIVE: CASE EVENT DATE: 20220808
